FAERS Safety Report 10170140 (Version 2)
Quarter: 2014Q2

REPORT INFORMATION
  Report Type: Spontaneous
  Country: JP (occurrence: JP)
  Receive Date: 20140513
  Receipt Date: 20140602
  Transmission Date: 20141212
  Serious: Yes (Other)
  Sender: FDA-Public Use
  Company Number: JP-GLAXOSMITHKLINE-B0992801A

PATIENT
  Age: 72 Year
  Sex: Male

DRUGS (8)
  1. SERETIDE [Suspect]
     Indication: ASTHMA
     Dosage: 250MCG TWICE PER DAY
     Route: 055
  2. AMARYL [Suspect]
     Indication: DIABETES MELLITUS
     Route: 048
  3. JANUVIA [Suspect]
     Indication: DIABETES MELLITUS
     Route: 048
  4. METGLUCO [Suspect]
     Indication: DIABETES MELLITUS
     Route: 048
  5. SELTOUCH [Concomitant]
     Indication: ASTHMA
     Route: 062
  6. HOKUNALIN [Concomitant]
     Indication: ASTHMA
     Route: 062
  7. MICARDIS [Concomitant]
     Indication: HYPERTENSION
     Route: 048
  8. CILNIDIPINE [Concomitant]
     Indication: HYPERTENSION
     Route: 048

REACTIONS (2)
  - Convulsion [Recovered/Resolved]
  - Gait disturbance [Recovered/Resolved]
